FAERS Safety Report 10264754 (Version 1)
Quarter: 2014Q2

REPORT INFORMATION
  Report Type: Spontaneous
  Country: US (occurrence: US)
  Receive Date: 20140627
  Receipt Date: 20140627
  Transmission Date: 20141212
  Serious: No
  Sender: FDA-Public Use
  Company Number: US-SHIRE-US201402999

PATIENT
  Sex: Female
  Weight: 79.37 kg

DRUGS (6)
  1. FIRAZYR [Suspect]
     Indication: HEREDITARY ANGIOEDEMA
     Dosage: 30 MG, AS REQ^D
     Route: 058
  2. METOPROLOL [Concomitant]
     Indication: HYPERTENSION
     Dosage: 25 MG, 1X/DAY:QD
     Route: 048
  3. ATORVASTATIN [Concomitant]
     Indication: BLOOD CHOLESTEROL
     Dosage: 10 MG, 1X/DAY:QD
     Route: 048
  4. OXYCODONE [Concomitant]
     Indication: PAIN
     Dosage: UNK, UNKNOWN
     Route: 065
  5. EPIPEN [Concomitant]
     Indication: HYPERSENSITIVITY
     Dosage: UNK, AS REQ^D
     Route: 030
  6. CINRYZE [Concomitant]
     Indication: HEREDITARY ANGIOEDEMA
     Dosage: UNK(1500 UNITS), OTHER(EVERY THREE DAYS)
     Route: 042

REACTIONS (2)
  - Drug ineffective [Recovered/Resolved]
  - Drug effect delayed [Recovered/Resolved]
